FAERS Safety Report 5235271-5 (Version None)
Quarter: 2007Q1

REPORT INFORMATION
  Report Type: 
  Country: None (occurrence: None)
  Receive Date: 20070212
  Receipt Date: 20070201
  Transmission Date: 20070707
  Serious: Yes (Death)
  Sender: FDA-Public Use
  Company Number: JP-JNJFOC-20070106686

PATIENT
  Sex: Female
  Weight: 100 kg

DRUGS (10)
  1. RISPERDAL [Suspect]
     Indication: SCHIZOPHRENIA
     Route: 048
  2. RISPERDAL [Suspect]
     Route: 048
  3. SEROQUEL [Concomitant]
     Route: 048
  4. ARTANE [Concomitant]
     Indication: SCHIZOPHRENIA
     Route: 048
  5. LORAZEPAM [Concomitant]
     Route: 048
  6. HIRNAMIN [Concomitant]
     Route: 048
  7. KAMAG G [Concomitant]
     Route: 048
  8. PURSENNID [Concomitant]
     Route: 048
  9. CARBAMAZEPINE [Concomitant]
     Route: 048
  10. VALPROATE SODIUM [Concomitant]
     Route: 048

REACTIONS (4)
  - ASPIRATION [None]
  - DIABETES MELLITUS [None]
  - DIABETIC KETOACIDOSIS [None]
  - POLYDIPSIA [None]
